APPROVED DRUG PRODUCT: NICOTROL
Active Ingredient: NICOTINE
Strength: 0.5MG/SPRAY
Dosage Form/Route: SPRAY, METERED;NASAL
Application: N020385 | Product #001
Applicant: PFIZER INC
Approved: Mar 22, 1996 | RLD: Yes | RS: Yes | Type: RX